FAERS Safety Report 19952418 (Version 9)
Quarter: 2023Q1

REPORT INFORMATION
  Report Type: Report from Study
  Country: IL (occurrence: IL)
  Receive Date: 20211014
  Receipt Date: 20230302
  Transmission Date: 20230417
  Serious: Yes (Hospitalization, Other)
  Sender: FDA-Public Use
  Company Number: IL-ABBVIE-20K-082-3577823-00

PATIENT
  Age: 87 Year
  Sex: Female
  Weight: 72 kg

DRUGS (26)
  1. VENCLEXTA [Suspect]
     Active Substance: VENETOCLAX
     Indication: Chronic lymphocytic leukaemia
     Dosage: 20 MILLIGRAM
     Route: 048
     Dates: start: 20200504, end: 20200509
  2. VENCLEXTA [Suspect]
     Active Substance: VENETOCLAX
     Indication: Chronic lymphocytic leukaemia
     Dosage: 50 MILLIGRAM
     Route: 048
     Dates: start: 20200510, end: 20200516
  3. VENCLEXTA [Suspect]
     Active Substance: VENETOCLAX
     Indication: Chronic lymphocytic leukaemia
     Dosage: 100 MILLIGRAM
     Route: 048
     Dates: start: 20200517, end: 20200523
  4. VENCLEXTA [Suspect]
     Active Substance: VENETOCLAX
     Indication: Chronic lymphocytic leukaemia
     Dosage: 200 MILLIGRAM
     Route: 048
     Dates: start: 20200524, end: 20200530
  5. VENCLEXTA [Suspect]
     Active Substance: VENETOCLAX
     Indication: Chronic lymphocytic leukaemia
     Dosage: 300 MILLIGRAM
     Route: 048
     Dates: start: 20200531, end: 20200628
  6. VENCLEXTA [Suspect]
     Active Substance: VENETOCLAX
     Indication: Chronic lymphocytic leukaemia
     Dosage: 400 MILLIGRAM
     Route: 048
     Dates: start: 20200629, end: 20200802
  7. VENCLEXTA [Suspect]
     Active Substance: VENETOCLAX
     Indication: Chronic lymphocytic leukaemia
     Dosage: 0 MILLIGRAM
     Route: 048
     Dates: start: 20210927
  8. VENCLEXTA [Suspect]
     Active Substance: VENETOCLAX
     Indication: Chronic lymphocytic leukaemia
     Route: 048
     Dates: start: 20200630, end: 20200803
  9. VENCLEXTA [Suspect]
     Active Substance: VENETOCLAX
     Indication: Chronic lymphocytic leukaemia
     Dosage: 300 MILLIGRAM
     Route: 048
     Dates: start: 20200803, end: 20200829
  10. VENCLEXTA [Suspect]
     Active Substance: VENETOCLAX
     Indication: Chronic lymphocytic leukaemia
     Dosage: 400 MILLIGRAM
     Route: 048
     Dates: start: 20200830, end: 20210926
  11. PFIZER-BIONTECH COVID-19 VACCINE [Concomitant]
     Active Substance: TOZINAMERAN
     Indication: COVID-19 immunisation
     Dosage: FIRST DOSE, FREQUENCY: ONE IN ONCE
     Route: 030
     Dates: start: 20201223, end: 20201223
  12. PFIZER-BIONTECH COVID-19 VACCINE [Concomitant]
     Active Substance: TOZINAMERAN
     Indication: COVID-19 immunisation
     Dosage: SECOND DOSE, FREQUENCY: ONE IN ONCE
     Route: 030
     Dates: start: 20210113, end: 20210113
  13. MABTHERA [Suspect]
     Active Substance: RITUXIMAB
     Indication: Drug therapy
     Route: 065
     Dates: start: 20200504, end: 20200504
  14. MABTHERA [Suspect]
     Active Substance: RITUXIMAB
     Indication: Drug therapy
     Dosage: CYCLE 2
     Route: 065
     Dates: start: 20200531, end: 20200531
  15. MABTHERA [Suspect]
     Active Substance: RITUXIMAB
     Indication: Drug therapy
     Dosage: CYCLE 4
     Route: 065
     Dates: start: 20200629, end: 20200629
  16. MABTHERA [Suspect]
     Active Substance: RITUXIMAB
     Indication: Drug therapy
     Route: 065
     Dates: start: 20200803, end: 20200803
  17. MABTHERA [Suspect]
     Active Substance: RITUXIMAB
     Indication: Drug therapy
     Dosage: CYCLE1
     Route: 065
     Dates: start: 20200309, end: 20200309
  18. MABTHERA [Suspect]
     Active Substance: RITUXIMAB
     Indication: Drug therapy
     Dosage: CYCLE 6
     Route: 065
     Dates: start: 20200406, end: 20200406
  19. MABTHERA [Suspect]
     Active Substance: RITUXIMAB
     Indication: Drug therapy
     Dosage: CYCLE 3
     Route: 065
     Dates: start: 20200503, end: 20200503
  20. OMEPRAZOLE [Concomitant]
     Active Substance: OMEPRAZOLE
     Indication: Gastrooesophageal reflux disease
     Dates: start: 2011
  21. JANUVIA [Concomitant]
     Active Substance: SITAGLIPTIN PHOSPHATE
     Indication: Diabetes mellitus
     Dates: start: 2011
  22. LORAZEPAM [Concomitant]
     Active Substance: LORAZEPAM
     Indication: Anxiety disorder
  23. MIRO [Concomitant]
     Indication: Anxiety disorder
  24. ESCITALOPRAM [Concomitant]
     Active Substance: ESCITALOPRAM OXALATE
     Indication: Anxiety disorder
  25. AMBIEN CR [Concomitant]
     Active Substance: ZOLPIDEM TARTRATE
     Indication: Anxiety disorder
  26. ALLOPURINOL [Concomitant]
     Active Substance: ALLOPURINOL
     Indication: Prophylaxis
     Dates: start: 202003, end: 202006

REACTIONS (13)
  - Hypercalcaemia [Recovered/Resolved]
  - Tumour lysis syndrome [Recovered/Resolved]
  - Chronic lymphocytic leukaemia [Unknown]
  - Blood creatinine increased [Not Recovered/Not Resolved]
  - Dizziness [Recovered/Resolved]
  - Dehydration [Unknown]
  - Lymphocyte count increased [Unknown]
  - Platelet count decreased [Recovered/Resolved]
  - Diarrhoea [Recovered/Resolved]
  - Disease progression [Unknown]
  - Diarrhoea [Recovered/Resolved]
  - Diarrhoea [Recovered/Resolved]
  - Nausea [Recovered/Resolved]

NARRATIVE: CASE EVENT DATE: 20200511
